FAERS Safety Report 6056259-0 (Version None)
Quarter: 2009Q1

REPORT INFORMATION
  Report Type: 
  Country: None (occurrence: None)
  Receive Date: 20090126
  Receipt Date: 20090126
  Transmission Date: 20090719
  Serious: No
  Sender: FDA-Public Use
  Company Number: None

PATIENT
  Age: 61 Year

DRUGS (1)
  1. BENAZEPRIL [Suspect]
     Indication: HYPERTENSION
     Dosage: 40 MG AT BEDTIME PO
     Route: 048
     Dates: start: 20060713, end: 20081201

REACTIONS (1)
  - HYPERKALAEMIA [None]
